FAERS Safety Report 5936688-3 (Version None)
Quarter: 2008Q4

REPORT INFORMATION
  Report Type: 
  Country: None (occurrence: None)
  Receive Date: 20081021
  Receipt Date: 20070912
  Transmission Date: 20090506
  Serious: No
  Sender: FDA-Public Use
  Company Number: HQWYE139219JUL07

PATIENT
  Age: 65 Year
  Sex: Female
  Weight: 61.29 kg

DRUGS (4)
  1. PREMARIN [Suspect]
     Indication: HORMONE REPLACEMENT THERAPY
     Dosage: 1 TABLET 1X PER 1 DAY, ORAL
     Route: 048
     Dates: start: 19940101
  2. CELEBREX [Concomitant]
  3. MULTIVITAMINS, PLAIN (MULTIVITAMINS, PLAIN) [Concomitant]
  4. ASPIRIN [Concomitant]

REACTIONS (1)
  - COELIAC DISEASE [None]
